FAERS Safety Report 22322603 (Version 3)
Quarter: 2023Q2

REPORT INFORMATION
  Report Type: Report from Study
  Country: US (occurrence: US)
  Receive Date: 20230516
  Receipt Date: 20230519
  Transmission Date: 20230722
  Serious: No
  Sender: FDA-Public Use
  Company Number: US-002147023-NVSC2023US108436

PATIENT
  Sex: Male
  Weight: 99.79 kg

DRUGS (4)
  1. COSENTYX [Suspect]
     Active Substance: SECUKINUMAB
     Indication: Psoriasis
     Dosage: UNK
     Route: 065
  2. CYCLOSPORINE [Suspect]
     Active Substance: CYCLOSPORINE
     Indication: Psoriasis
     Dosage: UNK
     Route: 065
  3. PREDNISONE [Suspect]
     Active Substance: PREDNISONE
     Indication: Psoriasis
     Dosage: UNK
     Route: 065
  4. HUMIRA [Suspect]
     Active Substance: ADALIMUMAB
     Indication: Psoriasis
     Dosage: UNK
     Route: 065

REACTIONS (7)
  - Pharyngitis streptococcal [Unknown]
  - Arthralgia [Unknown]
  - Psoriasis [Recovering/Resolving]
  - Pruritus [Unknown]
  - Skin exfoliation [Unknown]
  - Pain of skin [Unknown]
  - Treatment failure [Unknown]
